FAERS Safety Report 7279657-6 (Version None)
Quarter: 2011Q1

REPORT INFORMATION
  Report Type: 
  Country: None (occurrence: None)
  Receive Date: 20110203
  Receipt Date: 20110203
  Transmission Date: 20110831
  Serious: Yes (Hospitalization)
  Sender: FDA-Public Use
  Company Number: None

PATIENT
  Age: 65 Year
  Sex: Male
  Weight: 86 kg

DRUGS (2)
  1. CLINDAMYCIN [Suspect]
     Indication: TOE AMPUTATION
     Dosage: 450 MG TID PO
     Route: 048
     Dates: start: 20100817, end: 20110112
  2. CIPROFLOXACIN [Suspect]
     Indication: TOE AMPUTATION
     Dosage: 250 MG BID PO
     Route: 048
     Dates: start: 20100817, end: 20110112

REACTIONS (2)
  - CLOSTRIDIUM TEST POSITIVE [None]
  - DIARRHOEA [None]
